FAERS Safety Report 7955240-1 (Version None)
Quarter: 2011Q4

REPORT INFORMATION
  Report Type: 
  Country: None (occurrence: None)
  Receive Date: 20111202
  Receipt Date: 20111124
  Transmission Date: 20120403
  Serious: Yes (Hospitalization)
  Sender: FDA-Public Use
  Company Number: JP-EISAI INC-E7389-01707-SPO-JP

PATIENT
  Sex: Female
  Weight: 42 kg

DRUGS (8)
  1. HALAVEN [Suspect]
     Indication: METASTASES TO BONE
  2. HALAVEN [Suspect]
     Indication: METASTASES TO PLEURA
  3. CINAL [Concomitant]
     Route: 048
     Dates: start: 20091210, end: 20110919
  4. HALAVEN [Suspect]
     Indication: BREAST CANCER RECURRENT
     Route: 041
     Dates: start: 20110721, end: 20110922
  5. HALAVEN [Suspect]
     Indication: METASTASES TO LUNG
  6. DECADRON [Concomitant]
     Route: 042
     Dates: start: 20110721, end: 20110908
  7. HALAVEN [Suspect]
     Indication: METASTASES TO LIVER
  8. TRANEXAMIC ACID [Concomitant]
     Route: 048
     Dates: start: 20091210, end: 20110919

REACTIONS (1)
  - CYSTITIS HAEMORRHAGIC [None]
